FAERS Safety Report 6545048-6 (Version None)
Quarter: 2010Q1

REPORT INFORMATION
  Report Type: 
  Country: None (occurrence: None)
  Receive Date: 20100121
  Receipt Date: 20100118
  Transmission Date: 20100710
  Serious: Yes (Life-Threatening)
  Sender: FDA-Public Use
  Company Number: B0626596A

PATIENT
  Sex: Female

DRUGS (2)
  1. AUGMENTIN '125' [Suspect]
     Indication: BREAST ABSCESS
     Route: 048
     Dates: start: 20091106, end: 20091106
  2. BRUFEN 400 [Suspect]
     Indication: BREAST ABSCESS
     Dosage: 400MG UNKNOWN
     Route: 048
     Dates: start: 20091106, end: 20091106

REACTIONS (4)
  - ANGIOEDEMA [None]
  - HYPERSENSITIVITY [None]
  - SKIN LESION [None]
  - URTICARIA [None]
